FAERS Safety Report 19267214 (Version 3)
Quarter: 2021Q3

REPORT INFORMATION
  Report Type: Spontaneous
  Country: US (occurrence: US)
  Receive Date: 20210517
  Receipt Date: 20210726
  Transmission Date: 20211014
  Serious: Yes (Other)
  Sender: FDA-Public Use
  Company Number: US-PFIZER INC-2021432873

PATIENT
  Age: 61 Year
  Sex: Female

DRUGS (5)
  1. XELJANZ XR [Suspect]
     Active Substance: TOFACITINIB CITRATE
     Dosage: 11 MG
     Dates: start: 20210321
  2. XELJANZ XR [Suspect]
     Active Substance: TOFACITINIB CITRATE
     Dosage: 11 MG
     Dates: start: 20210401
  3. XELJANZ XR [Suspect]
     Active Substance: TOFACITINIB CITRATE
     Dosage: 11 MG
     Dates: start: 20210329
  4. XELJANZ XR [Suspect]
     Active Substance: TOFACITINIB CITRATE
     Dosage: 11 MG
     Dates: start: 20210331
  5. COVID?19 VACCINE [Concomitant]

REACTIONS (10)
  - Headache [Unknown]
  - Feeling hot [Unknown]
  - Hyperhidrosis [Unknown]
  - Blood pressure increased [Unknown]
  - Feeling abnormal [Unknown]
  - Bursitis [Unknown]
  - Diarrhoea [Recovered/Resolved]
  - Cellulitis [Unknown]
  - Lethargy [Unknown]
  - Intentional product misuse [Unknown]

NARRATIVE: CASE EVENT DATE: 2021
